FAERS Safety Report 7497124-1 (Version None)
Quarter: 2011Q2

REPORT INFORMATION
  Report Type: 
  Country: None (occurrence: None)
  Receive Date: 20110516
  Receipt Date: 20110503
  Transmission Date: 20111010
  Serious: Yes (Hospitalization)
  Sender: FDA-Public Use
  Company Number: 2011MA004913

PATIENT
  Age: 33 Year
  Sex: Male

DRUGS (2)
  1. SERTRALINE HYDROCHLORIDE [Suspect]
     Indication: SCHIZOPHRENIA
     Dosage: 50 MG; QD;
  2. RISPERIDONE [Concomitant]

REACTIONS (5)
  - ORGANISING PNEUMONIA [None]
  - RESPIRATORY FAILURE [None]
  - PNEUMOTHORAX [None]
  - PULMONARY FIBROSIS [None]
  - PULMONARY EOSINOPHILIA [None]
